FAERS Safety Report 9868156 (Version 2)
Quarter: 2014Q1

REPORT INFORMATION
  Report Type: Spontaneous
  Country: GB (occurrence: GB)
  Receive Date: 20140204
  Receipt Date: 20140204
  Transmission Date: 20141002
  Serious: Yes (Other)
  Sender: FDA-Public Use
  Company Number: PHFR2014GB000457

PATIENT
  Age: 63 Year
  Sex: Male
  Weight: 116.6 kg

DRUGS (8)
  1. CLOZARIL [Suspect]
     Dosage: UNK
     Route: 048
     Dates: start: 20131204
  2. CLOZARIL [Suspect]
     Dosage: 275 MG, DAILY
     Route: 048
  3. CLOZARIL [Suspect]
     Dosage: 125 MG, DAILY (DOSE HAS BEEN REDUCED FROM 275 MG ON 31 DEC 2013)
     Route: 048
     Dates: end: 20140102
  4. MIRTAZAPINE [Concomitant]
     Indication: DEPRESSION
     Dosage: 30 MG, UNK
     Route: 048
  5. SODIUM VALPROATE [Concomitant]
     Indication: AFFECTIVE DISORDER
     Dosage: 1 G, UNK
     Route: 048
  6. SIMVASTATIN [Concomitant]
     Indication: BLOOD CHOLESTEROL INCREASED
     Dosage: 40 MG, UNK
     Route: 048
  7. OLANZAPINE [Concomitant]
     Indication: PSYCHOTIC DISORDER
     Dosage: 5 MG, UNK
     Route: 048
     Dates: start: 20131230, end: 20140103
  8. OLANZAPINE [Concomitant]
     Dosage: 10 MG, UNK
     Route: 048
     Dates: start: 20140103

REACTIONS (11)
  - Autonomic nervous system imbalance [Recovering/Resolving]
  - Hypotension [Recovering/Resolving]
  - Anaemia [Recovered/Resolved]
  - White blood cell count increased [Recovering/Resolving]
  - Neutrophil count increased [Recovering/Resolving]
  - Neuroleptic malignant syndrome [Recovering/Resolving]
  - Pneumonia [Recovering/Resolving]
  - Pyrexia [Recovering/Resolving]
  - C-reactive protein increased [Recovering/Resolving]
  - Malaise [Recovering/Resolving]
  - Lower respiratory tract infection [Recovered/Resolved]
